FAERS Safety Report 5009962-5 (Version None)
Quarter: 2006Q2

REPORT INFORMATION
  Report Type: 
  Country: None (occurrence: None)
  Receive Date: 20060522
  Receipt Date: 20060510
  Transmission Date: 20061013
  Serious: Yes (Other)
  Sender: FDA-Public Use
  Company Number: B0422605A

PATIENT
  Age: 27 Year
  Sex: Female

DRUGS (4)
  1. LAMIVUDINE [Suspect]
     Indication: HIV INFECTION
     Dates: start: 20010301
  2. AMPRENAVIR (FORMULATION UNKNOWN) (AMPRENAVIR) [Suspect]
     Indication: HIV INFECTION
     Dates: start: 20010301
  3. STAVUDINE [Suspect]
     Indication: HIV INFECTION
     Dates: start: 20010301
  4. RITONAVIR (RITONAVIR) [Suspect]
     Indication: HIV INFECTION
     Dates: start: 20010301

REACTIONS (3)
  - BASEDOW'S DISEASE [None]
  - IMMUNE RECONSTITUTION SYNDROME [None]
  - THYROID NEOPLASM [None]
